FAERS Safety Report 10088937 (Version 1)
Quarter: 2014Q2

REPORT INFORMATION
  Report Type: Spontaneous
  Country: US (occurrence: US)
  Receive Date: 20140421
  Receipt Date: 20140421
  Transmission Date: 20141212
  Serious: Yes (Death, Other)
  Sender: FDA-Public Use
  Company Number: US-JNJFOC-20140412973

PATIENT
  Sex: Male

DRUGS (2)
  1. SIMEPREVIR [Suspect]
     Indication: HEPATIC CIRRHOSIS
     Route: 065
  2. SOVALDI [Suspect]
     Indication: HEPATIC CIRRHOSIS
     Route: 065

REACTIONS (4)
  - Death [Fatal]
  - Haemorrhage [Not Recovered/Not Resolved]
  - Abdominal pain [Not Recovered/Not Resolved]
  - Off label use [Not Recovered/Not Resolved]
